FAERS Safety Report 12198208 (Version 1)
Quarter: 2016Q1

REPORT INFORMATION
  Report Type: Spontaneous
  Country: US (occurrence: None)
  Receive Date: 20160321
  Receipt Date: 20160321
  Transmission Date: 20160526
  Serious: Yes (Other)
  Sender: FDA-Public Use
  Company Number: None

PATIENT
  Sex: Female

DRUGS (1)
  1. XELJANZ [Suspect]
     Active Substance: TOFACITINIB CITRATE
     Indication: TRANSPLANT
     Route: 048
     Dates: start: 20160109

REACTIONS (3)
  - Therapy cessation [None]
  - Osteomyelitis [None]
  - Swelling [None]
